FAERS Safety Report 6516067-0 (Version None)
Quarter: 2009Q4

REPORT INFORMATION
  Report Type: 
  Country: None (occurrence: None)
  Receive Date: 20091223
  Receipt Date: 20091106
  Transmission Date: 20100525
  Serious: No
  Sender: FDA-Public Use
  Company Number: US-ABBOTT-09P-163-0607874-00

PATIENT
  Sex: Male
  Weight: 88.53 kg

DRUGS (2)
  1. LUPRON DEPOT [Suspect]
     Indication: PROSTATE CANCER
     Dates: start: 20081101
  2. LUMIGAN [Concomitant]
     Indication: GLAUCOMA

REACTIONS (2)
  - BACK PAIN [None]
  - OSTEOPENIA [None]
